FAERS Safety Report 10573199 (Version 2)
Quarter: 2014Q4

REPORT INFORMATION
  Report Type: Spontaneous
  Country: US (occurrence: US)
  Receive Date: 20141110
  Receipt Date: 20141114
  Transmission Date: 20150529
  Serious: Yes (Death, Life-Threatening, Hospitalization, Other)
  Sender: FDA-Public Use
  Company Number: US-009507513-1411USA003262

PATIENT
  Sex: Male
  Weight: 122.45 kg

DRUGS (1)
  1. JANUVIA [Suspect]
     Active Substance: SITAGLIPTIN PHOSPHATE
     Indication: TYPE 2 DIABETES MELLITUS
     Dosage: 100 MG, QD
     Route: 048
     Dates: start: 20080827, end: 20100524

REACTIONS (32)
  - Metastases to lung [Unknown]
  - Pulmonary mass [Unknown]
  - Incorrect dose administered [Unknown]
  - Back pain [Not Recovered/Not Resolved]
  - Metastases to liver [Unknown]
  - Metastases to spine [Unknown]
  - Pelvi-ureteric obstruction [Not Recovered/Not Resolved]
  - Coronary artery disease [Unknown]
  - Fall [Unknown]
  - Cholelithiasis [Unknown]
  - Chronic obstructive pulmonary disease [Unknown]
  - Headache [Unknown]
  - Renal atrophy [Unknown]
  - Skull fractured base [Unknown]
  - Radiotherapy [Unknown]
  - Device difficult to use [Unknown]
  - Dehydration [Unknown]
  - Chronic kidney disease [Not Recovered/Not Resolved]
  - Hypertension [Unknown]
  - Cardiac failure congestive [Unknown]
  - Coombs positive haemolytic anaemia [Unknown]
  - Pancreatic carcinoma metastatic [Unknown]
  - Death [Fatal]
  - Ligament sprain [Unknown]
  - Soft tissue mass [Unknown]
  - Coronary angioplasty [Unknown]
  - Bladder diverticulum [Unknown]
  - Arthralgia [Unknown]
  - Metastases to bone [Unknown]
  - Urinary retention [Unknown]
  - Coagulopathy [Unknown]
  - Cardiomegaly [Unknown]

NARRATIVE: CASE EVENT DATE: 200905
